FAERS Safety Report 12072397 (Version 1)
Quarter: 2016Q1

REPORT INFORMATION
  Report Type: Spontaneous
  Country: US (occurrence: US)
  Receive Date: 20160212
  Receipt Date: 20160212
  Transmission Date: 20160526
  Serious: Yes (Hospitalization, Other)
  Sender: FDA-Public Use
  Company Number: US-AMGEN-USASP2016010466

PATIENT
  Age: 68 Year
  Sex: Female
  Weight: 76.2 kg

DRUGS (10)
  1. SERTRALINE HYDROCHLORIDE. [Concomitant]
     Active Substance: SERTRALINE HYDROCHLORIDE
     Dosage: 100 MG, BID
     Route: 048
  2. OMEPRAZOLE. [Concomitant]
     Active Substance: OMEPRAZOLE
     Dosage: 40 MG, UNK
     Route: 048
  3. GABAPENTIN. [Concomitant]
     Active Substance: GABAPENTIN
     Dosage: 300 MG, QD
     Route: 048
  4. HYDROXYCHLOROQUINE [Concomitant]
     Active Substance: HYDROXYCHLOROQUINE
     Dosage: 200 MG, QD
     Route: 048
  5. REPATHA [Suspect]
     Active Substance: EVOLOCUMAB
     Indication: HYPERCHOLESTEROLAEMIA
     Dosage: 140 MG/ML, Q2WK
     Route: 058
     Dates: start: 20151207
  6. ALPRAZOLAM. [Concomitant]
     Active Substance: ALPRAZOLAM
     Dosage: 0.5 MG, (5 ML), Q2MO
     Route: 048
  7. LAMICTAL [Concomitant]
     Active Substance: LAMOTRIGINE
     Dosage: 100 MG, QD
     Route: 048
  8. ASPIRIN                            /00002701/ [Concomitant]
     Active Substance: ASPIRIN
     Dosage: 81 MG, QD
     Route: 048
  9. VESICARE [Concomitant]
     Active Substance: SOLIFENACIN SUCCINATE
     Dosage: 10 MG, QD
     Route: 048
  10. CALCIUM [Concomitant]
     Active Substance: CALCIUM

REACTIONS (18)
  - Cardiovascular function test abnormal [Unknown]
  - Fatigue [Unknown]
  - Blood pressure increased [Unknown]
  - Headache [Unknown]
  - Respiratory tract congestion [Not Recovered/Not Resolved]
  - Palpitations [Unknown]
  - Dyspnoea [Unknown]
  - Neck pain [Unknown]
  - Cough [Unknown]
  - Head discomfort [Not Recovered/Not Resolved]
  - Sleep apnoea syndrome [Unknown]
  - Memory impairment [Unknown]
  - Generalised tonic-clonic seizure [Unknown]
  - Pneumonia [Unknown]
  - Chest pain [Unknown]
  - Paraesthesia [Unknown]
  - Upper respiratory tract irritation [Unknown]
  - Oropharyngeal pain [Not Recovered/Not Resolved]

NARRATIVE: CASE EVENT DATE: 201512
